FAERS Safety Report 8362113-1 (Version None)
Quarter: 2012Q2

REPORT INFORMATION
  Report Type: 
  Country: None (occurrence: None)
  Receive Date: 20120515
  Receipt Date: 20120510
  Transmission Date: 20120825
  Serious: Yes (Death, Life-Threatening, Hospitalization, Disabling)
  Sender: FDA-Public Use
  Company Number: US-PFIZER INC-2012088390

PATIENT
  Sex: Female
  Weight: 93 kg

DRUGS (10)
  1. PLACEBO [Suspect]
     Dosage: BLINDED THERAPY
     Route: 042
     Dates: start: 20110426, end: 20110426
  2. ASPIRIN [Suspect]
     Indication: CEREBROVASCULAR ACCIDENT PROPHYLAXIS
     Dosage: 81 MG, EVERY 24H
     Route: 048
     Dates: start: 20060101
  3. PLACEBO [Suspect]
     Indication: DEMENTIA ALZHEIMER'S TYPE
     Dosage: BLINDED THERAPY
     Route: 051
     Dates: start: 20101101, end: 20101101
  4. LIPITOR [Suspect]
     Indication: BLOOD CHOLESTEROL INCREASED
     Dosage: 10 MG, EVERY 24H
     Route: 048
     Dates: start: 20120202
  5. PLACEBO [Suspect]
     Dosage: BLINDED THERAPY
     Route: 042
     Dates: start: 20110203, end: 20110203
  6. PLACEBO [Suspect]
     Dosage: BLINDED THERAPY
     Route: 042
     Dates: start: 20111025, end: 20111025
  7. SERTRALINE HYDROCHLORIDE [Suspect]
     Indication: ANXIETY
     Dosage: 50 MG, EVERY 24 H
     Route: 048
     Dates: start: 20101207
  8. SERTRALINE HYDROCHLORIDE [Concomitant]
     Indication: DEPRESSION
  9. PLACEBO [Suspect]
     Dosage: BLINDED THERAPY
     Route: 042
     Dates: start: 20110802, end: 20110802
  10. PLACEBO [Suspect]
     Dosage: BLINDED THERAPY
     Route: 051
     Dates: start: 20120130, end: 20120130

REACTIONS (1)
  - HAEMORRHAGIC STROKE [None]
